FAERS Safety Report 4725037-4 (Version None)
Quarter: 2005Q3

REPORT INFORMATION
  Report Type: 
  Country: None (occurrence: None)
  Receive Date: 20050722
  Receipt Date: 20050711
  Transmission Date: 20060218
  Serious: Yes (Hospitalization, Other)
  Sender: FDA-Public Use
  Company Number: 2005099159

PATIENT
  Sex: Male
  Weight: 97.0698 kg

DRUGS (4)
  1. VIAGRA [Suspect]
     Indication: ERECTILE DYSFUNCTION
     Dosage: (100 MG), ORAL
     Route: 048
     Dates: end: 20050101
  2. PROSCAR [Suspect]
     Indication: BENIGN PROSTATIC HYPERPLASIA
     Dosage: ORAL
     Route: 048
  3. LISINOPRIL [Concomitant]
  4. ALL OTHER THERAPEUTIC PRODUCTS (ALL OTHER  THERAPEUTIC PRODUCTS) [Concomitant]

REACTIONS (5)
  - BLOOD TRIGLYCERIDES INCREASED [None]
  - DIZZINESS [None]
  - OPTIC NERVE DISORDER [None]
  - VISION BLURRED [None]
  - VITREOUS FLOATERS [None]
